FAERS Safety Report 7723462-0 (Version None)
Quarter: 2011Q3

REPORT INFORMATION
  Report Type: 
  Country: None (occurrence: None)
  Receive Date: 20110901
  Receipt Date: 20110830
  Transmission Date: 20111222
  Serious: Yes (Other)
  Sender: FDA-Public Use
  Company Number: US-PFIZER INC-2011158625

PATIENT
  Sex: Female
  Weight: 102 kg

DRUGS (14)
  1. LORAZEPAM [Concomitant]
     Indication: BIPOLAR DISORDER
     Dosage: UNK
  2. LORATADINE [Concomitant]
     Dosage: UNK
  3. TESSALON [Concomitant]
     Dosage: 100 MG, 3X/DAY
  4. ZITHROMAX [Concomitant]
     Dosage: UNK
  5. OMEPRAZOLE [Concomitant]
     Dosage: 20 MG, DAILY
  6. SINGULAIR [Concomitant]
     Indication: ASTHMA
     Dosage: 10 MG, UNK
  7. TRILEPTAL [Concomitant]
     Indication: DEPRESSION
     Dosage: UNK
  8. ABILIFY [Concomitant]
     Indication: BIPOLAR DISORDER
     Dosage: 10 MG, HS(AT BEDTIME)
  9. ADVAIR DISKUS 100/50 [Concomitant]
     Dosage: [FLUTICASONE PROPIONATE 150/SALMETEROL XINAFOATE 50], 2X/DAY
     Route: 055
  10. CHANTIX [Suspect]
     Indication: SMOKING CESSATION THERAPY
     Dosage: 0.5 MG, 1X/DAY
     Route: 048
     Dates: start: 20110630
  11. ZOLPIDEM [Concomitant]
     Indication: SLEEP DISORDER
     Dosage: UNK
  12. QVAR 40 [Concomitant]
     Dosage: 40 MG, 2X/DAY
     Route: 055
  13. DICYCLOMINE [Concomitant]
     Dosage: UNK
  14. CLONAZEPAM [Concomitant]
     Dosage: UNK

REACTIONS (3)
  - ASTHMA [None]
  - IRRITABILITY [None]
  - TREMOR [None]
